FAERS Safety Report 8205097-9 (Version None)
Quarter: 2012Q1

REPORT INFORMATION
  Report Type: 
  Country: None (occurrence: None)
  Receive Date: 20120313
  Receipt Date: 20120306
  Transmission Date: 20120608
  Serious: Yes (Hospitalization, Other)
  Sender: FDA-Public Use
  Company Number: FR-ABBOTT-12P-056-0912267-00

PATIENT
  Sex: Male

DRUGS (1)
  1. HUMIRA [Suspect]
     Indication: CROHN'S DISEASE
     Dosage: LOADING DOSE, ONCE
     Route: 058
     Dates: start: 20111204, end: 20111204

REACTIONS (10)
  - VOMITING [None]
  - GASTROINTESTINAL HAEMORRHAGE [None]
  - HYPERTENSION [None]
  - PRURITUS GENERALISED [None]
  - DERMATITIS ALLERGIC [None]
  - PYREXIA [None]
  - FATIGUE [None]
  - MUSCULOSKELETAL PAIN [None]
  - RASH PUSTULAR [None]
  - NAUSEA [None]
